FAERS Safety Report 18054322 (Version 3)
Quarter: 2022Q3

REPORT INFORMATION
  Report Type: Spontaneous
  Country: US (occurrence: US)
  Receive Date: 20200722
  Receipt Date: 20220915
  Transmission Date: 20221027
  Serious: Yes (Other)
  Sender: FDA-Public Use
  Company Number: US-SAARTEMIS-SAC202007170145

PATIENT
  Age: 39 Year
  Sex: Male

DRUGS (1)
  1. ZANTAC [Suspect]
     Active Substance: RANITIDINE HYDROCHLORIDE
     Indication: Dyspepsia
     Dosage: 150 MG, FREQUENCY: OTHER
     Dates: start: 199901, end: 201901

REACTIONS (4)
  - Bladder cancer stage III [Unknown]
  - Gastric cancer [Unknown]
  - Lung neoplasm malignant [Unknown]
  - Testis cancer [Unknown]

NARRATIVE: CASE EVENT DATE: 20030101
